FAERS Safety Report 21572261 (Version 1)
Quarter: 2022Q4

REPORT INFORMATION
  Report Type: Spontaneous
  Country: US (occurrence: US)
  Receive Date: 20221109
  Receipt Date: 20221109
  Transmission Date: 20230113
  Serious: No
  Sender: FDA-Public Use
  Company Number: US-ALKERMES INC.-ALK-2022-005317

PATIENT
  Sex: Female

DRUGS (2)
  1. ARISTADA [Suspect]
     Active Substance: ARIPIPRAZOLE LAUROXIL
     Indication: Schizoaffective disorder
     Dosage: 1064 MILLIGRAM, Q2MO
     Route: 030
     Dates: start: 20200127
  2. OLANZAPINE [Suspect]
     Active Substance: OLANZAPINE
     Indication: Schizoaffective disorder
     Dosage: 2.5 MILLIGRAM
     Route: 065
     Dates: start: 201907, end: 202208

REACTIONS (6)
  - Schizophrenia [Unknown]
  - Paranoia [Unknown]
  - Derealisation [Unknown]
  - Drug ineffective [Unknown]
  - Off label use [Unknown]
  - Tremor [Unknown]
